FAERS Safety Report 8537966 (Version 7)
Quarter: 2012Q4

REPORT INFORMATION
  Report Type: Report from Study
  Country: PT (occurrence: PT)
  Receive Date: 20120501
  Receipt Date: 20121217
  Transmission Date: 20130627
  Serious: Yes (Death, Life-Threatening, Hospitalization)
  Sender: FDA-Public Use
  Company Number: PHHO2012PT006400

PATIENT
  Age: 39 None
  Sex: Male
  Weight: 78 kg

DRUGS (5)
  1. FTY [Suspect]
     Indication: MULTIPLE SCLEROSIS
     Dosage: 0.5 mg, QD
     Route: 048
     Dates: start: 20110426, end: 20120423
  2. ESCITALOPRAM [Concomitant]
     Dosage: 10 mg, QD
     Dates: start: 20080722, end: 20120423
  3. TRAZODONE [Concomitant]
     Dosage: 150 mg, QD
     Dates: start: 20080722, end: 20120426
  4. PREGABALIN [Concomitant]
     Dosage: 75 mg, BID
     Dates: start: 20120228, end: 20120423
  5. AMITRIPTYLINE [Concomitant]
     Dosage: 50 mg, QD
     Dates: start: 20120207, end: 20120426

REACTIONS (3)
  - Ischaemic stroke [Fatal]
  - Histiocytosis haematophagic [Unknown]
  - Duodenal ulcer perforation [Unknown]
